FAERS Safety Report 5374578-8 (Version None)
Quarter: 2007Q2

REPORT INFORMATION
  Report Type: 
  Country: None (occurrence: None)
  Receive Date: 20070629
  Receipt Date: 20070620
  Transmission Date: 20071010
  Serious: Yes (Other)
  Sender: FDA-Public Use
  Company Number: US-JNJFOC-20070106133

PATIENT
  Sex: Female
  Weight: 62.6 kg

DRUGS (7)
  1. INFLIXIMAB [Suspect]
     Route: 042
  2. INFLIXIMAB [Suspect]
     Route: 042
  3. INFLIXIMAB [Suspect]
     Route: 042
  4. INFLIXIMAB [Suspect]
     Route: 042
  5. INFLIXIMAB [Suspect]
     Indication: CROHN'S DISEASE
     Dosage: 3 INFUSIONS ON UNSPECIFIED DATES PRIOR TO BASELINE
     Route: 042
  6. MERCAPTOPURINE [Suspect]
     Indication: CROHN'S DISEASE
  7. PREDNISONE [Suspect]
     Indication: CROHN'S DISEASE

REACTIONS (2)
  - ABORTION SPONTANEOUS [None]
  - DRUG EXPOSURE DURING PREGNANCY [None]
